FAERS Safety Report 9795584 (Version 1)
Quarter: 2014Q1

REPORT INFORMATION
  Report Type: Spontaneous
  Country: MX (occurrence: MX)
  Receive Date: 20140103
  Receipt Date: 20140103
  Transmission Date: 20141002
  Serious: Yes (Disabling)
  Sender: FDA-Public Use
  Company Number: MX-ROCHE-1327664

PATIENT
  Age: 31 Year
  Sex: Female
  Weight: 112 kg

DRUGS (4)
  1. TAMIFLU [Suspect]
     Indication: INFLUENZA
     Dosage: ON 29/DEC/2013, MOST RECENT DOSE RECEIVED
     Route: 048
     Dates: start: 20131227
  2. CLARITHROMYCIN [Concomitant]
     Route: 048
     Dates: start: 20131227
  3. AFRIN NASAL SPRAY [Concomitant]
     Route: 045
     Dates: start: 20131227, end: 20131228
  4. VENTOLIN [Concomitant]
     Route: 065
     Dates: start: 20131227, end: 20131228

REACTIONS (1)
  - Diplopia [Not Recovered/Not Resolved]
